FAERS Safety Report 7201390-7 (Version None)
Quarter: 2010Q4

REPORT INFORMATION
  Report Type: 
  Country: None (occurrence: None)
  Receive Date: 20101215
  Receipt Date: 20101202
  Transmission Date: 20110411
  Serious: Yes (Other)
  Sender: FDA-Public Use
  Company Number: 023127

PATIENT
  Age: 17 Year
  Sex: Male

DRUGS (2)
  1. KEPPRA [Suspect]
     Indication: PARTIAL SEIZURES
     Dosage: (500 MG BID ORAL)
     Route: 048
     Dates: start: 20101129, end: 20101201
  2. BARBITURATE [Concomitant]

REACTIONS (1)
  - STATUS EPILEPTICUS [None]
